FAERS Safety Report 7130400-0 (Version None)
Quarter: 2010Q4

REPORT INFORMATION
  Report Type: 
  Country: None (occurrence: None)
  Receive Date: 20101101
  Receipt Date: 20100708
  Transmission Date: 20110411
  Serious: No
  Sender: FDA-Public Use
  Company Number: 2010-09314

PATIENT
  Age: 67 Year
  Sex: Male

DRUGS (2)
  1. RAPAFLO [Suspect]
     Indication: URINARY INCONTINENCE
     Dosage: 1 CAPSULE, DAILY WITH MEALS, ORAL
     Route: 048
     Dates: start: 20100701, end: 20100704
  2. RAPAFLO [Suspect]
     Indication: URINARY INCONTINENCE
     Dosage: 1 CAPSUL, DAILY WITH MEALS, ORAL
     Route: 048
     Dates: start: 20100705

REACTIONS (2)
  - BURNING SENSATION [None]
  - DIARRHOEA [None]
